FAERS Safety Report 9397918 (Version 1)
Quarter: 2013Q3

REPORT INFORMATION
  Report Type: Spontaneous
  Country: JP (occurrence: None)
  Receive Date: 20130709
  Receipt Date: 20130709
  Transmission Date: 20140515
  Serious: Yes (Hospitalization)
  Sender: FDA-Public Use
  Company Number: TCI2013A03251

PATIENT
  Age: 37 Year
  Sex: Male

DRUGS (11)
  1. NESINA TABLETS 25 MG (ALOGLIPTIN BENZOATE) [Suspect]
     Indication: HYPERGLYCAEMIA
     Route: 048
     Dates: start: 20120215, end: 20130514
  2. BAYASPIRIN (ACETYLSALICYCLIC ACID) [Concomitant]
  3. SIGMART (NICORANDIL) [Concomitant]
  4. MICARDIS (TELMISARTAN) [Concomitant]
  5. MAINTATE (BISOPROLOL FUMARATE) [Concomitant]
  6. NIVADIL (NILVADIPINE) [Concomitant]
  7. SELARA (EPLERENONE) [Concomitant]
  8. LIVALO (PITAVASTATIN CALCIUM) [Concomitant]
  9. GASTER D (FAMOTIDINE) [Concomitant]
  10. METGLUCO (METFORMIN HYDROCHLORIDE) [Concomitant]
  11. AMARYL (GLIMEPIRIDE) [Concomitant]

REACTIONS (2)
  - Colitis ulcerative [None]
  - Myocardial infarction [None]
